FAERS Safety Report 17380445 (Version 1)
Quarter: 2020Q1

REPORT INFORMATION
  Report Type: Spontaneous
  Country: US (occurrence: US)
  Receive Date: 20200206
  Receipt Date: 20200206
  Transmission Date: 20200409
  Serious: Yes (Other)
  Sender: FDA-Public Use
  Company Number: US-ABBVIE-19K-163-2734908-00

PATIENT
  Age: 65 Year
  Sex: Female

DRUGS (1)
  1. HUMIRA [Suspect]
     Active Substance: ADALIMUMAB
     Indication: RHEUMATOID ARTHRITIS
     Route: 058
     Dates: start: 201903

REACTIONS (5)
  - Wrong technique in product usage process [Unknown]
  - Rheumatoid arthritis [Not Recovered/Not Resolved]
  - Medical procedure [Unknown]
  - Incorrect dose administered [Unknown]
  - Postoperative adhesion [Not Recovered/Not Resolved]

NARRATIVE: CASE EVENT DATE: 2019
